FAERS Safety Report 5892285-X (Version None)
Quarter: 2008Q3

REPORT INFORMATION
  Report Type: 
  Country: None (occurrence: None)
  Receive Date: 20080919
  Receipt Date: 20080910
  Transmission Date: 20090109
  Serious: Yes (Life-Threatening, Hospitalization, Disabling)
  Sender: FDA-Public Use
  Company Number: 2008090018

PATIENT
  Age: 30 Year
  Sex: Male
  Weight: 85.7298 kg

DRUGS (16)
  1. SOMA [Suspect]
     Indication: MUSCLE SPASMS
     Dosage: 700 MG (700 MG, AT BEDTIME), ORAL, 1050 MG (1050 MG, 1 IN 1 D), ORAL, 1750 MG (1750 MG, 1 IN 1 D), O
     Route: 048
     Dates: start: 20040101, end: 20050101
  2. SOMA [Suspect]
     Indication: MUSCLE SPASMS
     Dosage: 700 MG (700 MG, AT BEDTIME), ORAL, 1050 MG (1050 MG, 1 IN 1 D), ORAL, 1750 MG (1750 MG, 1 IN 1 D), O
     Route: 048
     Dates: start: 20050101, end: 20060101
  3. SOMA [Suspect]
     Indication: MUSCLE SPASMS
     Dosage: 700 MG (700 MG, AT BEDTIME), ORAL, 1050 MG (1050 MG, 1 IN 1 D), ORAL, 1750 MG (1750 MG, 1 IN 1 D), O
     Route: 048
     Dates: start: 20060101, end: 20070101
  4. SOMA [Suspect]
     Indication: MUSCLE SPASMS
     Dosage: 700 MG (700 MG, AT BEDTIME), ORAL, 1050 MG (1050 MG, 1 IN 1 D), ORAL, 1750 MG (1750 MG, 1 IN 1 D), O
     Route: 048
     Dates: start: 20070101
  5. ACTIQ [Suspect]
     Indication: NECK PAIN
     Dosage: 800 MCG (800 MCG, 1 IN 1 D), BU, 1600 MCG (800 MCG, 2 IN 1 D), BU, 2400 MCG (800 MCG, 3 IN 1 D), BU
     Route: 002
     Dates: start: 20050701, end: 20060101
  6. ACTIQ [Suspect]
     Indication: NECK PAIN
     Dosage: 800 MCG (800 MCG, 1 IN 1 D), BU, 1600 MCG (800 MCG, 2 IN 1 D), BU, 2400 MCG (800 MCG, 3 IN 1 D), BU
     Route: 002
     Dates: start: 20060201, end: 20060301
  7. ACTIQ [Suspect]
     Indication: NECK PAIN
     Dosage: 800 MCG (800 MCG, 1 IN 1 D), BU, 1600 MCG (800 MCG, 2 IN 1 D), BU, 2400 MCG (800 MCG, 3 IN 1 D), BU
     Route: 002
     Dates: start: 20061002
  8. OXYCONTIN [Suspect]
     Dosage: 360 MG (120 MG, 3 IN 1 D), ORAL, 480 MG (160 MG, 3 IN 1 D), ORAL
     Route: 048
     Dates: start: 20050101
  9. DILAUDID [Suspect]
     Dosage: 20 MG (20 MG, 1 IN 1 D), ORAL
     Route: 048
     Dates: end: 20060101
  10. DILAUDID [Suspect]
     Dosage: 20 MG (20 MG, 1 IN 1 D), ORAL
     Route: 048
     Dates: start: 20060101
  11. KLONOPIN [Suspect]
     Dosage: SEE IMAGE
     Route: 048
     Dates: start: 20050101, end: 20050101
  12. KLONOPIN [Suspect]
     Dosage: SEE IMAGE
     Route: 048
     Dates: start: 20050601, end: 20060101
  13. KLONOPIN [Suspect]
     Dosage: SEE IMAGE
     Route: 048
     Dates: start: 20060101, end: 20070101
  14. KLONOPIN [Suspect]
     Dosage: SEE IMAGE
     Route: 048
     Dates: start: 20070101
  15. AMBIEN [Concomitant]
  16. SUBUTEX [Concomitant]

REACTIONS (10)
  - DENTAL CARIES [None]
  - DRUG DEPENDENCE [None]
  - DRUG TOXICITY [None]
  - LEGAL PROBLEM [None]
  - MAJOR DEPRESSION [None]
  - MENTAL DISORDER [None]
  - MENTAL DISORDER DUE TO A GENERAL MEDICAL CONDITION [None]
  - ROAD TRAFFIC ACCIDENT [None]
  - SUICIDE ATTEMPT [None]
  - TREATMENT NONCOMPLIANCE [None]
